FAERS Safety Report 14679194 (Version 1)
Quarter: 2018Q1

REPORT INFORMATION
  Report Type: Spontaneous
  Country: US (occurrence: US)
  Receive Date: 20180326
  Receipt Date: 20180326
  Transmission Date: 20180509
  Serious: No
  Sender: FDA-Public Use
  Company Number: US-PFIZER INC-2018119909

PATIENT
  Age: 92 Year
  Sex: Female

DRUGS (1)
  1. FLUCONAZOLE. [Suspect]
     Active Substance: FLUCONAZOLE
     Indication: CANDIDA INFECTION
     Dosage: UNK
     Dates: start: 20180315, end: 20180321

REACTIONS (2)
  - Confusional state [Unknown]
  - Eating disorder [Unknown]

NARRATIVE: CASE EVENT DATE: 201803
